FAERS Safety Report 13202519 (Version 1)
Quarter: 2017Q1

REPORT INFORMATION
  Report Type: Spontaneous
  Country: US (occurrence: US)
  Receive Date: 20170209
  Receipt Date: 20170209
  Transmission Date: 20170428
  Serious: No
  Sender: FDA-Public Use
  Company Number: US-PFIZER INC-2017056312

PATIENT
  Age: 76 Year
  Sex: Female
  Weight: 53 kg

DRUGS (2)
  1. IBRANCE [Suspect]
     Active Substance: PALBOCICLIB
     Dosage: 75 MG, UNK, 2 WEEKS ON THEN 2 WEEKS OFF
     Route: 048
  2. IBRANCE [Suspect]
     Active Substance: PALBOCICLIB
     Indication: BREAST CANCER METASTATIC
     Dosage: 150 MG, UNK

REACTIONS (6)
  - Abdominal pain upper [Unknown]
  - Weight decreased [Unknown]
  - Vomiting [Unknown]
  - Malaise [Unknown]
  - Hypersomnia [Unknown]
  - White blood cell count decreased [Unknown]
